FAERS Safety Report 6358403-4 (Version None)
Quarter: 2009Q3

REPORT INFORMATION
  Report Type: 
  Country: None (occurrence: None)
  Receive Date: 20090916
  Receipt Date: 20090904
  Transmission Date: 20100115
  Serious: Yes (Disabling)
  Sender: FDA-Public Use
  Company Number: DE-GENENTECH-263804

PATIENT
  Sex: Female

DRUGS (6)
  1. AVASTIN [Suspect]
     Indication: COLORECTAL CANCER
     Dosage: 300 MG, Q2W
     Route: 042
     Dates: start: 20050928, end: 20080124
  2. AVASTIN [Suspect]
     Dosage: 300 MG, Q2W
     Route: 042
     Dates: start: 20070101
  3. CALCIUMFOLINAT [Concomitant]
     Indication: DRUG USE FOR UNKNOWN INDICATION
  4. FLUOROURACIL [Concomitant]
     Indication: DRUG USE FOR UNKNOWN INDICATION
  5. LORZAAR [Concomitant]
     Indication: DRUG USE FOR UNKNOWN INDICATION
  6. DIURETICS [Concomitant]
     Indication: DRUG USE FOR UNKNOWN INDICATION

REACTIONS (5)
  - ANEURYSM [None]
  - HYPERTENSION [None]
  - RETINAL ANEURYSM [None]
  - RETINAL HAEMORRHAGE [None]
  - VISUAL IMPAIRMENT [None]
